FAERS Safety Report 6754509-6 (Version None)
Quarter: 2010Q2

REPORT INFORMATION
  Report Type: 
  Country: None (occurrence: None)
  Receive Date: 20100603
  Receipt Date: 20100524
  Transmission Date: 20101027
  Serious: Yes (Other)
  Sender: FDA-Public Use
  Company Number: KR-PFIZER INC-2010064442

PATIENT
  Sex: Female

DRUGS (4)
  1. NEURONTIN [Suspect]
     Indication: PARAPLEGIA
     Dosage: 100 MG, 3X/DAY
     Route: 048
     Dates: start: 20051101
  2. NEURONTIN [Suspect]
     Indication: OEDEMA PERIPHERAL
  3. NEURONTIN [Suspect]
     Indication: POST PROCEDURAL HAEMATOMA
  4. NORVASC [Concomitant]
     Indication: HYPERTENSION
     Dosage: UNK
     Route: 048

REACTIONS (6)
  - DIZZINESS [None]
  - DYSPEPSIA [None]
  - OEDEMA PERIPHERAL [None]
  - PARAPLEGIA [None]
  - POST PROCEDURAL HAEMATOMA [None]
  - SKIN MACERATION [None]
